FAERS Safety Report 6131448-5 (Version None)
Quarter: 2009Q1

REPORT INFORMATION
  Report Type: 
  Country: None (occurrence: None)
  Receive Date: 20090325
  Receipt Date: 20080716
  Transmission Date: 20090719
  Serious: No
  Sender: FDA-Public Use
  Company Number: US-BRISTOL-MYERS SQUIBB COMPANY-14265029

PATIENT
  Age: 53 Year
  Sex: Female
  Weight: 76 kg

DRUGS (6)
  1. ERBITUX [Suspect]
     Indication: COLON CANCER
     Dosage: 2ND DOSE GIVEN ON 10JUL'08
     Dates: start: 20080703, end: 20080703
  2. NOVOLOG [Concomitant]
  3. LANTUS [Concomitant]
  4. BENADRYL [Concomitant]
     Indication: PREMEDICATION
  5. DECADRON [Concomitant]
     Indication: PREMEDICATION
  6. IRINOTECAN HCL [Concomitant]

REACTIONS (1)
  - RASH [None]
